FAERS Safety Report 9466218 (Version 3)
Quarter: 2015Q3

REPORT INFORMATION
  Report Type: Report from Study
  Country: JP (occurrence: JP)
  Receive Date: 20130820
  Receipt Date: 20150908
  Transmission Date: 20151125
  Serious: Yes (Hospitalization)
  Sender: FDA-Public Use
  Company Number: JP-ROCHE-1260716

PATIENT
  Age: 74 Year
  Sex: Female

DRUGS (7)
  1. METHOXY POLYETHYLENE GLYCOL-EPOETIN BETA [Suspect]
     Active Substance: METHOXY POLYETHYLENE GLYCOL-EPOETIN BETA
     Indication: NEPHROGENIC ANAEMIA
     Route: 058
     Dates: start: 20121107, end: 20121120
  2. LOCHOL (JAPAN) [Concomitant]
     Route: 048
  3. NEORAL [Concomitant]
     Active Substance: CYCLOSPORINE
     Route: 048
     Dates: end: 20121225
  4. METHOXY POLYETHYLENE GLYCOL-EPOETIN BETA [Suspect]
     Active Substance: METHOXY POLYETHYLENE GLYCOL-EPOETIN BETA
     Indication: NEPHROGENIC ANAEMIA
     Route: 058
     Dates: start: 20120828, end: 20121023
  5. FEBURIC [Concomitant]
     Active Substance: FEBUXOSTAT
     Route: 048
     Dates: start: 20121120
  6. AVAPRO [Concomitant]
     Active Substance: IRBESARTAN
     Route: 048
  7. FEBURIC [Concomitant]
     Active Substance: FEBUXOSTAT
     Route: 048
     Dates: end: 20121113

REACTIONS (5)
  - Osteoporosis [Unknown]
  - Diabetes mellitus [Unknown]
  - Eosinophilic pneumonia [Recovered/Resolved]
  - Nephrotic syndrome [Recovered/Resolved]
  - Gastric ulcer [Unknown]

NARRATIVE: CASE EVENT DATE: 20121012
